FAERS Safety Report 5291221-7 (Version None)
Quarter: 2007Q2

REPORT INFORMATION
  Report Type: 
  Country: None (occurrence: None)
  Receive Date: 20070409
  Receipt Date: 20070403
  Transmission Date: 20071010
  Serious: Yes (Death)
  Sender: FDA-Public Use
  Company Number: FR-PFIZER INC-2007012090

PATIENT
  Sex: Female
  Weight: 87 kg

DRUGS (6)
  1. CELEBREX [Suspect]
     Indication: ARTHRALGIA
     Route: 048
  2. CELEBREX [Interacting]
     Indication: OSTEOARTHRITIS
  3. ASPIRIN [Interacting]
     Indication: CARDIAC DISORDER
     Route: 048
  4. PARACETAMOL [Concomitant]
  5. COAPROVEL [Concomitant]
     Indication: HYPERTENSION
     Route: 048
  6. ZOPICLONE [Concomitant]
     Route: 048

REACTIONS (2)
  - DRUG INTERACTION [None]
  - GASTRIC PERFORATION [None]
